FAERS Safety Report 10357210 (Version 3)
Quarter: 2014Q3

REPORT INFORMATION
  Report Type: Other
  Country: SE (occurrence: SE)
  Receive Date: 20140801
  Receipt Date: 20140813
  Transmission Date: 20150326
  Serious: Yes (Disabling)
  Sender: FDA-Public Use
  Company Number: SE-ASTELLAS-2014EU007536

PATIENT
  Age: 76 Year
  Sex: Female

DRUGS (2)
  1. BETMIGA [Suspect]
     Active Substance: MIRABEGRON
     Indication: URGE INCONTINENCE
     Route: 048
     Dates: start: 20131016, end: 20131203
  2. TROMBYL [Concomitant]
     Active Substance: ASPIRIN
     Indication: MUSCLE SPASMS
     Route: 065

REACTIONS (2)
  - Arthralgia [Recovering/Resolving]
  - Pain in extremity [Not Recovered/Not Resolved]

NARRATIVE: CASE EVENT DATE: 201311
